FAERS Safety Report 5316965-X (Version None)
Quarter: 2007Q1

REPORT INFORMATION
  Report Type: 
  Country: None (occurrence: None)
  Receive Date: 20070130
  Receipt Date: 20061125
  Transmission Date: 20070707
  Serious: No
  Sender: FDA-Public Use
  Company Number: 200619618US

PATIENT
  Sex: Female

DRUGS (1)
  1. KETEK [Suspect]
     Indication: SINUSITIS
     Dosage: 400 MG PO
     Route: 048
     Dates: start: 20060901

REACTIONS (1)
  - DRUG INEFFECTIVE [None]
